FAERS Safety Report 4386997-7 (Version None)
Quarter: 2004Q2

REPORT INFORMATION
  Report Type: 
  Country: None (occurrence: None)
  Receive Date: 20040629
  Receipt Date: 20040629
  Transmission Date: 20050107
  Serious: Yes (Hospitalization, Disabling)
  Sender: FDA-Public Use
  Company Number: None

PATIENT
  Sex: Female
  Weight: 48.0813 kg

DRUGS (2)
  1. SEPTOCAINE [Suspect]
     Indication: TOOTH DISORDER
     Dosage: 72 MG. (LOWER MANDIBULAR NERVE BLOCK INJECTION BY DENTIST)
     Route: 004
     Dates: start: 20031210
  2. NORDETTE-21 [Concomitant]

REACTIONS (10)
  - DRUG TOXICITY [None]
  - HEART RATE ABNORMAL [None]
  - HEART RATE INCREASED [None]
  - HYPOAESTHESIA [None]
  - INJURY [None]
  - MEDICATION ERROR [None]
  - MOVEMENT DISORDER [None]
  - NEURALGIA [None]
  - PAIN [None]
  - SCREAMING [None]
